FAERS Safety Report 13404013 (Version 1)
Quarter: 2017Q2

REPORT INFORMATION
  Report Type: Spontaneous
  Country: US (occurrence: US)
  Receive Date: 20170405
  Receipt Date: 20170405
  Transmission Date: 20170830
  Serious: No
  Sender: FDA-Public Use
  Company Number: None

PATIENT

DRUGS (2)
  1. HYDROCORTISONE HYDROCORTISONE [Suspect]
     Active Substance: HYDROCORTISONE
     Route: 042
  2. LANTUS [Suspect]
     Active Substance: INSULIN GLARGINE

REACTIONS (3)
  - Diabetic ketoacidosis [None]
  - Blood glucose increased [None]
  - Therapy cessation [None]
